FAERS Safety Report 12217073 (Version 2)
Quarter: 2016Q2

REPORT INFORMATION
  Report Type: Spontaneous
  Country: FR (occurrence: FR)
  Receive Date: 20160329
  Receipt Date: 20160407
  Transmission Date: 20160815
  Serious: Yes (Death)
  Sender: FDA-Public Use
  Company Number: FR-009507513-1603FRA011706

PATIENT
  Sex: Female

DRUGS (2)
  1. PREVISCAN [Concomitant]
     Active Substance: FLUINDIONE
     Dosage: UNK
  2. STROMECTOL [Suspect]
     Active Substance: IVERMECTIN
     Indication: ACARODERMATITIS
     Dosage: UNK
     Route: 048
     Dates: start: 201509

REACTIONS (1)
  - International normalised ratio abnormal [Fatal]
